FAERS Safety Report 23841002 (Version 1)
Quarter: 2024Q2

REPORT INFORMATION
  Report Type: Spontaneous
  Country: AT (occurrence: AT)
  Receive Date: 20240510
  Receipt Date: 20240510
  Transmission Date: 20240716
  Serious: No
  Sender: FDA-Public Use
  Company Number: AT-JNJFOC-20240487823

PATIENT
  Sex: Male

DRUGS (1)
  1. TALVEY [Suspect]
     Active Substance: TALQUETAMAB-TGVS
     Indication: Product used for unknown indication
     Route: 065

REACTIONS (5)
  - Skin disorder [Recovered/Resolved]
  - Onychomadesis [Unknown]
  - Ageusia [Unknown]
  - Pyrexia [Unknown]
  - Fatigue [Unknown]
